FAERS Safety Report 24315507 (Version 1)
Quarter: 2024Q3

REPORT INFORMATION
  Report Type: Spontaneous
  Country: IT (occurrence: IT)
  Receive Date: 20240913
  Receipt Date: 20240913
  Transmission Date: 20241017
  Serious: Yes (Life-Threatening)
  Sender: TEVA
  Company Number: None

PATIENT
  Age: 83 Year
  Sex: Female
  Weight: 43 kg

DRUGS (14)
  1. AMOXICILLIN\CLAVULANIC ACID [Suspect]
     Active Substance: AMOXICILLIN\CLAVULANIC ACID
     Indication: Pneumonitis
     Dosage: 2.2 G X3 DAYS, AMOXICILLIN + CLAVULANIC ACID
     Route: 042
     Dates: start: 20240722, end: 20240729
  2. PIPERACILLIN AND TAZOBACTAM [Suspect]
     Active Substance: PIPERACILLIN SODIUM\TAZOBACTAM SODIUM
     Indication: Pneumonitis
     Dosage: PIPERACILLIN AND TAZOBACTAM EG 4.5 G X3 EV
     Route: 042
     Dates: start: 20240729, end: 20240802
  3. RAMIPRIL [Concomitant]
     Active Substance: RAMIPRIL
     Indication: Hypertension
     Route: 065
  4. BREVA [Concomitant]
     Active Substance: ALBUTEROL\IPRATROPIUM
     Indication: Chronic obstructive pulmonary disease
     Dosage: 7 DROPS X3
     Route: 055
  5. PANTOPRAZOLE SODIUM [Concomitant]
     Active Substance: PANTOPRAZOLE SODIUM
     Indication: Product used for unknown indication
     Dosage: PANTOPRAZOLO 40 MG X2 EV
     Route: 042
  6. ELIQUIS [Suspect]
     Active Substance: APIXABAN
     Indication: Deep vein thrombosis
     Dosage: APIXABAN 10 MG X2 FOR ONE WEEK AND THEN 5 MG 1 CPX2
     Route: 048
     Dates: start: 20240724, end: 20240810
  7. PREDNISONE [Concomitant]
     Active Substance: PREDNISONE
     Indication: Chronic obstructive pulmonary disease
     Dosage: 25 MG 1 PC IN STEPS FROM 30-7, PREVIOUSLY FROM 23-7 METHYLPREDNISOLONE 40 MG X2 IN STEPS
     Route: 048
  8. CALCIO FOLINATO [Concomitant]
     Indication: Folate deficiency
     Route: 048
  9. CEFTAZIDIME [Suspect]
     Active Substance: CEFTAZIDIME
     Indication: Pneumonitis
     Dosage: 1 G X3 EV
     Route: 042
     Dates: start: 20240802, end: 20240808
  10. LEVOTHYROXINE [Concomitant]
     Active Substance: LEVOTHYROXINE\LEVOTHYROXINE SODIUM
     Indication: Hypothyroidism
     Route: 065
  11. FLUTICASONE [Concomitant]
     Active Substance: FLUTICASONE
     Indication: Chronic obstructive pulmonary disease
     Dosage: 1/2 VIAL X3
     Route: 055
  12. DOXYCYCLINE [Suspect]
     Active Substance: DOXYCYCLINE\DOXYCYCLINE HYCLATE
     Indication: Pneumonitis
     Dosage: 100 MG X2 TABLETS
     Route: 048
     Dates: start: 20240802, end: 20240808
  13. CHOLECALCIFEROL [Concomitant]
     Active Substance: CHOLECALCIFEROL
     Indication: Vitamin D deficiency
     Dosage: COLECALCIFEROLO ABC, 10000 UNITS 28 DROPS
     Route: 065
  14. SELEGILINA [Concomitant]
     Indication: Parkinsonism
     Dosage: 5 MG DAILY
     Route: 048

REACTIONS (1)
  - Thrombocytopenia [Not Recovered/Not Resolved]

NARRATIVE: CASE EVENT DATE: 20240806
